FAERS Safety Report 6771241-3 (Version None)
Quarter: 2010Q2

REPORT INFORMATION
  Report Type: 
  Country: None (occurrence: None)
  Receive Date: 20100616
  Receipt Date: 20100503
  Transmission Date: 20101027
  Serious: Yes (Other)
  Sender: FDA-Public Use
  Company Number: NL-ASTRAZENECA-2010SE22835

PATIENT
  Sex: Male

DRUGS (12)
  1. SEROQUEL [Suspect]
     Indication: ATTENTION DEFICIT/HYPERACTIVITY DISORDER
     Route: 048
  2. SEROQUEL [Suspect]
     Indication: BIPOLAR I DISORDER
     Route: 048
  3. SINEQUAN [Suspect]
     Indication: ATTENTION DEFICIT/HYPERACTIVITY DISORDER
  4. SINEQUAN [Suspect]
     Indication: BIPOLAR I DISORDER
  5. EFFEXOR [Suspect]
     Indication: ATTENTION DEFICIT/HYPERACTIVITY DISORDER
  6. EFFEXOR [Suspect]
     Indication: BIPOLAR I DISORDER
  7. PROZAC [Suspect]
     Indication: ATTENTION DEFICIT/HYPERACTIVITY DISORDER
  8. PROZAC [Suspect]
     Indication: BIPOLAR I DISORDER
  9. REMERON [Suspect]
     Indication: ATTENTION DEFICIT/HYPERACTIVITY DISORDER
  10. REMERON [Suspect]
     Indication: BIPOLAR I DISORDER
  11. TRAZOLAN [Suspect]
     Indication: ATTENTION DEFICIT/HYPERACTIVITY DISORDER
  12. TRAZOLAN [Suspect]
     Indication: BIPOLAR I DISORDER

REACTIONS (5)
  - AGGRESSION [None]
  - HOMICIDAL IDEATION [None]
  - LIBIDO DECREASED [None]
  - SUICIDAL IDEATION [None]
  - WEIGHT INCREASED [None]
